FAERS Safety Report 7562035-X (Version None)
Quarter: 2011Q2

REPORT INFORMATION
  Report Type: 
  Country: None (occurrence: None)
  Receive Date: 20110622
  Receipt Date: 20080703
  Transmission Date: 20111010
  Serious: Yes (Other)
  Sender: FDA-Public Use
  Company Number: PHHY2008DE37540

PATIENT
  Sex: Male
  Weight: 80 kg

DRUGS (6)
  1. SANDOSTATIN LAR [Suspect]
     Indication: PANCREATIC NEUROENDOCRINE TUMOUR
     Dosage: 20 MG, UNK
     Route: 030
     Dates: start: 19920101
  2. BENALAPRIL [Concomitant]
  3. DUTASTERIDE/TAMSULOSIN HYDROCHLORIDE [Suspect]
  4. METFORMIN HCL [Concomitant]
  5. ATACAND [Concomitant]
  6. BUSCOPAN PLUS [Suspect]

REACTIONS (4)
  - INITIAL INSOMNIA [None]
  - ABDOMINAL PAIN [None]
  - ABDOMINAL PAIN UPPER [None]
  - SARCOIDOSIS [None]
